FAERS Safety Report 7125308-0 (Version None)
Quarter: 2010Q4

REPORT INFORMATION
  Report Type: 
  Country: None (occurrence: None)
  Receive Date: 20101115
  Receipt Date: 20101108
  Transmission Date: 20110411
  Serious: Yes (Other)
  Sender: FDA-Public Use
  Company Number: 2010SP059303

PATIENT
  Age: 58 Year

DRUGS (3)
  1. RIBAVIRIN [Suspect]
     Indication: HEPATITIS C
     Dosage: ; PO
     Route: 048
     Dates: start: 20090201, end: 20100801
  2. PEGASYS [Suspect]
     Indication: HEPATITIS C
     Dates: start: 20090201, end: 20100801
  3. INFERGEN [Suspect]
     Indication: HEPATITIS C

REACTIONS (1)
  - RETINITIS [None]
